FAERS Safety Report 20237370 (Version 1)
Quarter: 2021Q4

REPORT INFORMATION
  Report Type: Spontaneous
  Country: US (occurrence: None)
  Receive Date: 20211227
  Receipt Date: 20211227
  Transmission Date: 20220303
  Serious: No
  Sender: FDA-Public Use
  Company Number: None

PATIENT
  Age: 22 Year
  Sex: Female
  Weight: 58.5 kg

DRUGS (3)
  1. OCREVUS [Suspect]
     Active Substance: OCRELIZUMAB
     Indication: Multiple sclerosis
     Dosage: OTHER FREQUENCY : ONE TIME INFUION;?
     Route: 041
     Dates: start: 20211219, end: 20211219
  2. Diphenhydramine 25 mg IVP [Concomitant]
     Dates: start: 20211219, end: 20211219
  3. hydrocortisone 100 mg IVP [Concomitant]
     Dates: start: 20211219, end: 20211219

REACTIONS (2)
  - Throat irritation [None]
  - Infusion related reaction [None]

NARRATIVE: CASE EVENT DATE: 20211219
